FAERS Safety Report 16044193 (Version 1)
Quarter: 2019Q1

REPORT INFORMATION
  Report Type: Spontaneous
  Country: AU (occurrence: AU)
  Receive Date: 20190306
  Receipt Date: 20190306
  Transmission Date: 20190418
  Serious: Yes (Other)
  Sender: FDA-Public Use
  Company Number: AU-ABBVIE-19P-008-2693017-00

PATIENT
  Sex: Male

DRUGS (1)
  1. LEUPRORELIN [Suspect]
     Active Substance: LEUPROLIDE ACETATE
     Indication: PROSTATE CANCER
     Dosage: 22.5 MICROGRAM, Q3MONTHS
     Route: 030

REACTIONS (13)
  - Drug ineffective [Unknown]
  - Neuropathy peripheral [Unknown]
  - Fracture [Unknown]
  - Hepatic function abnormal [Unknown]
  - Muscular weakness [Unknown]
  - Osteonecrosis of jaw [Recovered/Resolved]
  - Fatigue [Unknown]
  - Sexual dysfunction [Unknown]
  - Cerebrovascular accident [Unknown]
  - Diabetes mellitus [Unknown]
  - Adverse drug reaction [Unknown]
  - Affective disorder [Unknown]
  - Hot flush [Unknown]
